FAERS Safety Report 6535780-2 (Version None)
Quarter: 2010Q1

REPORT INFORMATION
  Report Type: 
  Country: None (occurrence: None)
  Receive Date: 20100106
  Receipt Date: 20091231
  Transmission Date: 20100710
  Serious: Yes (Death)
  Sender: FDA-Public Use
  Company Number: 2009USA004172

PATIENT
  Age: 60 Year
  Sex: Female

DRUGS (1)
  1. PROGRAF [Suspect]
     Indication: LIVER TRANSPLANT
     Dates: start: 20011001

REACTIONS (3)
  - CARDIO-RESPIRATORY ARREST [None]
  - DIABETES MELLITUS [None]
  - RENAL FAILURE [None]
